FAERS Safety Report 20990402 (Version 1)
Quarter: 2022Q2

REPORT INFORMATION
  Report Type: Spontaneous
  Country: DE (occurrence: DE)
  Receive Date: 20220622
  Receipt Date: 20220622
  Transmission Date: 20220720
  Serious: Yes (Disabling, Other)
  Sender: FDA-Public Use
  Company Number: DE-CELLTRION INC.-2022DE009417

PATIENT

DRUGS (1)
  1. TRASTUZUMAB [Suspect]
     Active Substance: TRASTUZUMAB
     Indication: Breast cancer
     Dosage: UNK
     Route: 042
     Dates: start: 2001, end: 2018

REACTIONS (3)
  - Pulmonary hypertension [Unknown]
  - Interstitial lung disease [Unknown]
  - Dyspnoea [Unknown]
